FAERS Safety Report 8111839-3 (Version None)
Quarter: 2012Q1

REPORT INFORMATION
  Report Type: 
  Country: None (occurrence: None)
  Receive Date: 20120203
  Receipt Date: 20120131
  Transmission Date: 20120608
  Serious: Yes (Other)
  Sender: FDA-Public Use
  Company Number: JP-PFIZER INC-2012026704

PATIENT
  Age: 70 Year
  Sex: Female

DRUGS (2)
  1. LYRICA [Suspect]
     Dosage: 300 MG (150 MG X 2 CAPSULES PER DAY)
     Route: 048
     Dates: start: 20120123, end: 20120130
  2. LYRICA [Suspect]
     Dosage: 150 MG (75 MG X 2 CAPSULES) PER DAY
     Route: 048
     Dates: start: 20111212, end: 20120122

REACTIONS (2)
  - TRIGEMINAL NEURALGIA [None]
  - SOMNOLENCE [None]
